FAERS Safety Report 13181943 (Version 1)
Quarter: 2017Q1

REPORT INFORMATION
  Report Type: Spontaneous
  Country: US (occurrence: US)
  Receive Date: 20170202
  Receipt Date: 20170202
  Transmission Date: 20170428
  Serious: No
  Sender: FDA-Public Use
  Company Number: US-IMPAX LABORATORIES, INC-2016-IPXL-02381

PATIENT
  Age: 66 Year
  Sex: Female

DRUGS (4)
  1. RYTARY [Suspect]
     Active Substance: CARBIDOPA\LEVODOPA
     Indication: PARKINSON^S DISEASE
     Dosage: 23.75 MG/95 MG ONE CAPSULE DAILY.
     Route: 048
     Dates: start: 20161127, end: 201612
  2. RYTARY [Suspect]
     Active Substance: CARBIDOPA\LEVODOPA
     Dosage: 48.75 MG/195 MG, ONE CAPSULE DAILY
     Route: 048
     Dates: start: 201612, end: 20161213
  3. CARBIDOPA-LEVODOPA ER [Suspect]
     Active Substance: CARBIDOPA\LEVODOPA
     Indication: PARKINSON^S DISEASE
     Dosage: 25/100 MG; UNK
     Route: 065
  4. RYTARY [Suspect]
     Active Substance: CARBIDOPA\LEVODOPA
     Dosage: 36.25 MG/145 MG 2 CAPSULES DAILY
     Route: 048
     Dates: start: 201612, end: 20161213

REACTIONS (7)
  - Anosmia [Unknown]
  - Feeding disorder [Unknown]
  - Weight decreased [Unknown]
  - Drug ineffective [Unknown]
  - Ageusia [Unknown]
  - Nausea [Unknown]
  - Oral disorder [Unknown]

NARRATIVE: CASE EVENT DATE: 20161127
